FAERS Safety Report 4696195-5 (Version None)
Quarter: 2005Q2

REPORT INFORMATION
  Report Type: 
  Country: None (occurrence: None)
  Receive Date: 20050608
  Receipt Date: 20040810
  Transmission Date: 20051028
  Serious: Yes (Other)
  Sender: FDA-Public Use
  Company Number: 377108

PATIENT
  Sex: 0

DRUGS (1)
  1. ROACCUTANE (ISOTRETINOIN) [Suspect]
     Indication: DRUG USE FOR UNKNOWN INDICATION
     Dates: start: 20031115

REACTIONS (2)
  - NO ADVERSE EFFECT [None]
  - PREGNANCY [None]
